FAERS Safety Report 8189188-7 (Version None)
Quarter: 2012Q1

REPORT INFORMATION
  Report Type: 
  Country: None (occurrence: None)
  Receive Date: 20120306
  Receipt Date: 20120306
  Transmission Date: 20120608
  Serious: Yes (Disabling)
  Sender: FDA-Public Use
  Company Number: None

PATIENT
  Sex: Male
  Weight: 99.7913 kg

DRUGS (2)
  1. BUPROPION HCL [Suspect]
     Indication: TINNITUS
     Dosage: 150 MG ONE BID PO; 150 MG ONE PO
     Route: 048
  2. BUPROPION HCL [Suspect]
     Indication: TINNITUS
     Dosage: 150 MG ONE BID PO; 150 MG ONE PO
     Route: 048

REACTIONS (1)
  - TINNITUS [None]
